FAERS Safety Report 10258520 (Version 1)
Quarter: 2014Q2

REPORT INFORMATION
  Report Type: Spontaneous
  Country: US (occurrence: US)
  Receive Date: 20140625
  Receipt Date: 20140625
  Transmission Date: 20141212
  Serious: No
  Sender: FDA-Public Use
  Company Number: US-009507513-1406USA009604

PATIENT
  Age: 42 Year
  Sex: Female

DRUGS (2)
  1. PUREGON PEN [Suspect]
     Indication: ASSISTED FERTILISATION
     Dosage: 225 IU, QD
     Route: 058
     Dates: start: 20140614
  2. FOLLISTIM AQ CARTRIDGE [Suspect]
     Indication: ASSISTED FERTILISATION
     Dosage: 225 IU, QD
     Dates: start: 20140614

REACTIONS (3)
  - Device failure [Unknown]
  - Drug dose omission [Unknown]
  - No adverse event [Unknown]
